FAERS Safety Report 4354818-4 (Version None)
Quarter: 2004Q2

REPORT INFORMATION
  Report Type: 
  Country: None (occurrence: None)
  Receive Date: 20040507
  Receipt Date: 20040426
  Transmission Date: 20050107
  Serious: Yes (Hospitalization)
  Sender: FDA-Public Use
  Company Number: BE-ROCHE-365369

PATIENT
  Age: 19 Year
  Sex: Male

DRUGS (5)
  1. ROACCUTANE [Suspect]
     Indication: ACNE
     Route: 048
     Dates: start: 20030615, end: 20030615
  2. ROACCUTANE [Suspect]
     Route: 048
     Dates: start: 20001215, end: 20010115
  3. ROACCUTANE [Suspect]
     Dosage: DOSE REPORTED AS 10-20-10-20.
     Route: 048
     Dates: start: 20010115, end: 20010315
  4. ROACCUTANE [Suspect]
     Route: 048
     Dates: start: 20010315, end: 20010315
  5. ROACCUTANE [Suspect]
     Route: 048
     Dates: start: 20020615, end: 20020615

REACTIONS (3)
  - DEPRESSION [None]
  - DYSMORPHOPHOBIA [None]
  - SCHIZOPHRENIA [None]
